FAERS Safety Report 11402655 (Version 1)
Quarter: 2015Q3

REPORT INFORMATION
  Report Type: Spontaneous
  Country: US (occurrence: US)
  Receive Date: 20150821
  Receipt Date: 20150821
  Transmission Date: 20151125
  Serious: No
  Sender: FDA-Public Use
  Company Number: US-ROCHE-1295964

PATIENT
  Sex: Male
  Weight: 84.44 kg

DRUGS (3)
  1. PEGASYS [Suspect]
     Active Substance: PEGINTERFERON ALFA-2A
     Indication: CHRONIC HEPATITIS C
     Route: 058
     Dates: start: 20131020
  2. COPEGUS [Suspect]
     Active Substance: RIBAVIRIN
     Indication: CHRONIC HEPATITIS C
     Route: 065
     Dates: start: 20131020
  3. INCIVEK [Suspect]
     Active Substance: TELAPREVIR
     Indication: CHRONIC HEPATITIS C
     Route: 048
     Dates: start: 20131020

REACTIONS (9)
  - Rash [Unknown]
  - Mass [Unknown]
  - Hyperaesthesia [Unknown]
  - Eye pain [Unknown]
  - Diarrhoea [Unknown]
  - Upper extremity mass [Unknown]
  - Pruritus [Unknown]
  - Headache [Unknown]
  - Painful defaecation [Recovering/Resolving]
